FAERS Safety Report 8539320 (Version 2)
Quarter: 2013Q2

REPORT INFORMATION
  Report Type: Spontaneous
  Country: TN (occurrence: TN)
  Receive Date: 20120501
  Receipt Date: 20130513
  Transmission Date: 20140414
  Serious: Yes (Other)
  Sender: FDA-Public Use
  Company Number: TN-MYLANLABS-2012S1008364

PATIENT
  Age: 4 Decade
  Sex: Male

DRUGS (4)
  1. TACROLIMUS [Suspect]
     Indication: IMMUNOSUPPRESSANT DRUG THERAPY
     Dosage: 10 MG/DAY
     Route: 065
  2. THEOPHYLLINE [Interacting]
     Indication: POLYCYTHAEMIA
     Dosage: 300 MG/DAY
     Route: 065
     Dates: start: 20090617
  3. MYCOPHENOLIC ACID [Concomitant]
     Indication: IMMUNOSUPPRESSANT DRUG THERAPY
     Dosage: 1500 MG/DAY
     Route: 065
  4. PREDNISONE [Concomitant]
     Indication: IMMUNOSUPPRESSANT DRUG THERAPY
     Dosage: 10 MG/DAY
     Route: 065

REACTIONS (4)
  - Drug interaction [Recovering/Resolving]
  - Renal impairment [Recovering/Resolving]
  - Polycythaemia [Recovering/Resolving]
  - Immunosuppressant drug level increased [Recovered/Resolved]
